FAERS Safety Report 13422591 (Version 2)
Quarter: 2017Q2

REPORT INFORMATION
  Report Type: Spontaneous
  Country: US (occurrence: US)
  Receive Date: 20170410
  Receipt Date: 20170518
  Transmission Date: 20170830
  Serious: Yes (Other)
  Sender: FDA-Public Use
  Company Number: US-TEVA-756712ACC

PATIENT
  Sex: Female
  Weight: 83.08 kg

DRUGS (2)
  1. PARAGARD T 380A [Suspect]
     Active Substance: COPPER
     Dates: start: 20150908
  2. TRAZODONE [Concomitant]
     Active Substance: TRAZODONE HYDROCHLORIDE
     Dates: start: 20170210

REACTIONS (3)
  - Pregnancy on contraceptive [Unknown]
  - Exposure during pregnancy [Unknown]
  - Abdominal pain [Unknown]
